FAERS Safety Report 11675567 (Version 3)
Quarter: 2016Q1

REPORT INFORMATION
  Report Type: Spontaneous
  Country: US (occurrence: US)
  Receive Date: 20151028
  Receipt Date: 20160217
  Transmission Date: 20160525
  Serious: Yes (Other)
  Sender: FDA-Public Use
  Company Number: PHEH2015US021355

PATIENT
  Age: 40 Year
  Sex: Female
  Weight: 94.3 kg

DRUGS (3)
  1. GILENYA [Suspect]
     Active Substance: FINGOLIMOD HYDROCHLORIDE
     Indication: MULTIPLE SCLEROSIS
     Dosage: 0.5 MG, QD
     Route: 048
     Dates: start: 20141203, end: 20150724
  2. CAUMADIN [Concomitant]
     Active Substance: WARFARIN SODIUM
     Indication: DEEP VEIN THROMBOSIS
     Dosage: UNK UNK, QD
     Route: 048
     Dates: start: 20040408
  3. VITAMIN D3 [Concomitant]
     Active Substance: CHOLECALCIFEROL
     Indication: VITAMIN D DEFICIENCY
     Dosage: UNK UNK, QD
     Route: 048
     Dates: start: 20150408

REACTIONS (5)
  - Extrasystoles [Recovered/Resolved]
  - Blood pressure decreased [Unknown]
  - Heart rate increased [Unknown]
  - Heart rate decreased [Unknown]
  - Palpitations [Recovering/Resolving]

NARRATIVE: CASE EVENT DATE: 20141203
